FAERS Safety Report 10378359 (Version 4)
Quarter: 2014Q3

REPORT INFORMATION
  Report Type: Spontaneous
  Country: US (occurrence: US)
  Receive Date: 20140812
  Receipt Date: 20140828
  Transmission Date: 20150326
  Serious: Yes (Hospitalization)
  Sender: FDA-Public Use
  Company Number: US-PFIZER INC-2014214839

PATIENT
  Age: 66 Year
  Sex: Male
  Weight: 96.15 kg

DRUGS (7)
  1. HYDROCHLOROTHIAZIDE. [Concomitant]
     Active Substance: HYDROCHLOROTHIAZIDE
     Dosage: UNK
  2. CLONIDINE. [Concomitant]
     Active Substance: CLONIDINE
     Indication: HYPERTENSION
     Dosage: 0.1 MG, 3X/DAY
  3. PRAVASTATIN [Concomitant]
     Active Substance: PRAVASTATIN\PRAVASTATIN SODIUM
     Dosage: UNK
  4. SUTENT [Suspect]
     Active Substance: SUNITINIB MALATE
     Indication: METASTATIC RENAL CELL CARCINOMA
     Dosage: 50 MG, ONCE DAILY (28DAYS EVERY 6 WEEKS)
     Route: 048
     Dates: start: 20140801, end: 20140815
  5. AMLODIPINE [Concomitant]
     Active Substance: AMLODIPINE BESYLATE
     Indication: HYPERTENSION
     Dosage: 10 MG, DAILY
  6. LOSARTAN [Concomitant]
     Active Substance: LOSARTAN
     Dosage: UNK
  7. BUPROPION [Concomitant]
     Active Substance: BUPROPION
     Dosage: UNK

REACTIONS (11)
  - Flatulence [Unknown]
  - Candida infection [Unknown]
  - Blood pressure increased [Unknown]
  - Insomnia [Unknown]
  - Tongue disorder [Unknown]
  - Glossodynia [Not Recovered/Not Resolved]
  - Dysgeusia [Not Recovered/Not Resolved]
  - Stomatitis [Unknown]
  - Blood sodium decreased [Unknown]
  - Pollakiuria [Unknown]
  - Diarrhoea [Unknown]

NARRATIVE: CASE EVENT DATE: 20140808
